FAERS Safety Report 8691230 (Version 2)
Quarter: 2012Q4

REPORT INFORMATION
  Report Type: 
  Country: FR (occurrence: FR)
  Receive Date: 20120730
  Receipt Date: 20120912
  Transmission Date: 20130627
  Serious: Yes (Hospitalization, Other)
  Sender: FDA-Public Use
  Company Number: PHHY2012FR064354

PATIENT
  Age: 59 Year
  Sex: Female

DRUGS (7)
  1. GLIVEC [Suspect]
     Indication: HYPEREOSINOPHILIC SYNDROME
     Dosage: 400 mg daily
     Route: 048
     Dates: start: 20120120
  2. GLIVEC [Suspect]
     Dosage: 300 mg daily
     Route: 048
     Dates: start: 20120221, end: 20120522
  3. CRESTOR [Suspect]
     Indication: HYPERCHOLESTEROLAEMIA
     Dosage: 10 mg, UNK
     Dates: start: 2007, end: 20120513
  4. VENTOLINE [Concomitant]
  5. SYMBICORT [Concomitant]
  6. SINGULAIR [Concomitant]
  7. DAFALGAN [Concomitant]

REACTIONS (8)
  - Pancreatic enlargement [Unknown]
  - Drug-induced liver injury [Unknown]
  - Hepatitis [Not Recovered/Not Resolved]
  - Abdominal pain upper [Unknown]
  - Periportal oedema [Unknown]
  - Liver function test abnormal [Unknown]
  - Jaundice [Unknown]
  - Hepatic necrosis [Unknown]
